FAERS Safety Report 5323651-9 (Version None)
Quarter: 2007Q2

REPORT INFORMATION
  Report Type: 
  Country: None (occurrence: None)
  Receive Date: 20070510
  Receipt Date: 20070510
  Transmission Date: 20071010
  Serious: Yes (Other)
  Sender: FDA-Public Use
  Company Number: None

PATIENT
  Age: 30 Year
  Sex: Male
  Weight: 78.0187 kg

DRUGS (2)
  1. NASONEX [Suspect]
     Indication: RHINITIS ALLERGIC
     Dosage: 2 SPRAYS IN EACH NOSTRIL TWICE DAILY
     Dates: start: 20021101
  2. NASACORT AQ [Suspect]
     Indication: RHINITIS ALLERGIC
     Dosage: 2 SP  BID

REACTIONS (2)
  - EPISTAXIS [None]
  - HEADACHE [None]
